FAERS Safety Report 24198491 (Version 1)
Quarter: 2024Q3

REPORT INFORMATION
  Report Type: Report from Study
  Country: PH (occurrence: None)
  Receive Date: 20240812
  Receipt Date: 20240812
  Transmission Date: 20241017
  Serious: Yes (Other)
  Sender: ASTRAZENECA
  Company Number: 2021A611837

PATIENT
  Age: 54 Year
  Sex: Male

DRUGS (1)
  1. IRESSA [Suspect]
     Active Substance: GEFITINIB
     Indication: Lung neoplasm malignant
     Dosage: 250.0MG UNKNOWN
     Route: 048
     Dates: start: 2019, end: 20210505

REACTIONS (3)
  - Bone cancer [Unknown]
  - Malignant central nervous system neoplasm [Unknown]
  - Hepatic cancer [Unknown]
